FAERS Safety Report 25849074 (Version 1)
Quarter: 2025Q3

REPORT INFORMATION
  Report Type: Spontaneous
  Country: CN (occurrence: CN)
  Receive Date: 20250925
  Receipt Date: 20250925
  Transmission Date: 20251021
  Serious: Yes (Other)
  Sender: ELI LILLY AND COMPANY
  Company Number: CN-ELI_LILLY_AND_COMPANY-CN202509013618

PATIENT
  Age: 61 Year
  Sex: Male

DRUGS (3)
  1. IXEKIZUMAB [Suspect]
     Active Substance: IXEKIZUMAB
     Indication: Psoriasis
     Route: 058
  2. IXEKIZUMAB [Suspect]
     Active Substance: IXEKIZUMAB
     Route: 058
     Dates: start: 20240119
  3. IXEKIZUMAB [Suspect]
     Active Substance: IXEKIZUMAB
     Route: 058
     Dates: start: 20240119

REACTIONS (3)
  - Paradoxical skin reaction [Recovered/Resolved]
  - Pulmonary tuberculosis [Recovered/Resolved]
  - Eczema [Recovered/Resolved]
